FAERS Safety Report 9894488 (Version 1)
Quarter: 2014Q1

REPORT INFORMATION
  Report Type: Spontaneous
  Country: AR (occurrence: AR)
  Receive Date: 20140213
  Receipt Date: 20140213
  Transmission Date: 20141002
  Serious: Yes (Other)
  Sender: FDA-Public Use
  Company Number: PHHY2014AR016895

PATIENT
  Sex: Female

DRUGS (1)
  1. EXJADE [Suspect]

REACTIONS (1)
  - Thalassaemia beta [Unknown]
